FAERS Safety Report 22125561 (Version 2)
Quarter: 2023Q2

REPORT INFORMATION
  Report Type: Spontaneous
  Country: US (occurrence: US)
  Receive Date: 20230322
  Receipt Date: 20230601
  Transmission Date: 20230722
  Serious: No
  Sender: FDA-Public Use
  Company Number: US-ALLERGAN-2302562US

PATIENT
  Age: 21 Year
  Sex: Male
  Weight: 102.04 kg

DRUGS (3)
  1. BOTOX COSMETIC [Suspect]
     Active Substance: ONABOTULINUMTOXINA
     Indication: Skin wrinkling
     Dosage: 100 UNITS, SINGLE
     Route: 058
     Dates: start: 20230109, end: 20230109
  2. BOTOX COSMETIC [Suspect]
     Active Substance: ONABOTULINUMTOXINA
     Indication: Hyperhidrosis
     Dosage: 100 UNITS, SINGLE
     Dates: start: 202209, end: 202209
  3. BOTOX COSMETIC [Suspect]
     Active Substance: ONABOTULINUMTOXINA
     Dosage: 100 UNITS, SINGLE
     Dates: start: 202206, end: 202206

REACTIONS (6)
  - Head titubation [Recovering/Resolving]
  - Muscle spasms [Recovering/Resolving]
  - Dystonic tremor [Unknown]
  - Muscle twitching [Recovering/Resolving]
  - Vision blurred [Recovering/Resolving]
  - Torticollis [Unknown]

NARRATIVE: CASE EVENT DATE: 20220101
